FAERS Safety Report 8278455-4 (Version None)
Quarter: 2012Q2

REPORT INFORMATION
  Report Type: 
  Country: None (occurrence: None)
  Receive Date: 20120412
  Receipt Date: 20111115
  Transmission Date: 20120825
  Serious: No
  Sender: FDA-Public Use
  Company Number: US-ASTRAZENECA-2011SE69770

PATIENT

DRUGS (3)
  1. LOSARTAN POTASSIUM [Concomitant]
  2. NEXIUM [Suspect]
     Route: 048
  3. CRESTOR [Suspect]
     Route: 048

REACTIONS (2)
  - DIVERTICULUM [None]
  - DRUG DOSE OMISSION [None]
